FAERS Safety Report 13936112 (Version 1)
Quarter: 2017Q3

REPORT INFORMATION
  Report Type: Spontaneous
  Country: US (occurrence: US)
  Receive Date: 20170905
  Receipt Date: 20170905
  Transmission Date: 20171127
  Serious: Yes (Hospitalization)
  Sender: FDA-Public Use
  Company Number: US-PFIZER INC-2017375820

PATIENT
  Age: 69 Year
  Sex: Female
  Weight: 86.18 kg

DRUGS (3)
  1. ZOMETA [Concomitant]
     Active Substance: ZOLEDRONIC ACID
     Indication: BONE DISORDER
     Dosage: INFUSION, ONCE IN A MONTH
  2. FULVESTRANT. [Concomitant]
     Active Substance: FULVESTRANT
     Dosage: INJECTION, ONCE IN A MONTH
  3. IBRANCE [Suspect]
     Active Substance: PALBOCICLIB
     Indication: BREAST CANCER
     Dosage: 125 MG, UNK
     Route: 048

REACTIONS (1)
  - Pleural effusion [Unknown]
